FAERS Safety Report 6146810-4 (Version None)
Quarter: 2009Q2

REPORT INFORMATION
  Report Type: 
  Country: None (occurrence: None)
  Receive Date: 20090406
  Receipt Date: 20090406
  Transmission Date: 20091009
  Serious: Yes (Disabling)
  Sender: FDA-Public Use
  Company Number: None

PATIENT
  Age: 65 Year
  Sex: Female
  Weight: 65.7716 kg

DRUGS (1)
  1. FOSAMAX PLUS D [Suspect]
     Indication: OSTEOPENIA
     Dosage: 1 PILL WEEKLY MOUTH
     Route: 048
     Dates: start: 19980101, end: 20090301

REACTIONS (5)
  - FALL [None]
  - FEMUR FRACTURE [None]
  - FRACTURE DELAYED UNION [None]
  - PAIN IN EXTREMITY [None]
  - WALKING AID USER [None]
